FAERS Safety Report 9470688 (Version 1)
Quarter: 2013Q3

REPORT INFORMATION
  Report Type: Report from Study
  Country: US (occurrence: US)
  Receive Date: 20130822
  Receipt Date: 20130822
  Transmission Date: 20140515
  Serious: Yes (Other)
  Sender: FDA-Public Use
  Company Number: US-ABBOTT-13P-163-1133309-00

PATIENT
  Age: 37 Year
  Sex: Female

DRUGS (4)
  1. HUMIRA [Suspect]
     Indication: COLITIS ULCERATIVE
     Dates: start: 20130714, end: 20130714
  2. HUMIRA [Suspect]
  3. HUMIRA [Suspect]
     Dates: start: 20130811
  4. 6-MP [Concomitant]
     Indication: COLITIS ULCERATIVE

REACTIONS (4)
  - Hysteroscopy [Recovered/Resolved]
  - Injection site erythema [Not Recovered/Not Resolved]
  - Haemorrhage [Unknown]
  - Injection site swelling [Not Recovered/Not Resolved]
